FAERS Safety Report 15640632 (Version 8)
Quarter: 2019Q1

REPORT INFORMATION
  Report Type: Report from Study
  Country: DE (occurrence: DE)
  Receive Date: 20181120
  Receipt Date: 20190306
  Transmission Date: 20190417
  Serious: Yes (Death, Life-Threatening, Hospitalization, Other)
  Sender: FDA-Public Use
  Company Number: DE-CELGENEUS-DEU-20181104114

PATIENT
  Age: 59 Year
  Sex: Male
  Weight: 80 kg

DRUGS (20)
  1. SUFENTANIL [Concomitant]
     Active Substance: SUFENTANIL
     Indication: ANALGESIC THERAPY
     Route: 041
     Dates: start: 20181112
  2. ASPIRIN. [Concomitant]
     Active Substance: ASPIRIN
     Indication: PRODUCT USED FOR UNKNOWN INDICATION
     Route: 048
     Dates: end: 20181117
  3. SUFENTANIL [Concomitant]
     Active Substance: SUFENTANIL
     Indication: PYREXIA
  4. PANTOPRAZOLE [Concomitant]
     Active Substance: PANTOPRAZOLE
     Indication: PROPHYLAXIS
     Dosage: 40 MILLIGRAM
     Route: 048
     Dates: start: 20181111
  5. MEROPENEM. [Concomitant]
     Active Substance: MEROPENEM
     Indication: ANTIBIOTIC THERAPY
     Dosage: 3 GRAM
     Route: 041
     Dates: start: 20181112
  6. NORADRENALINE [Concomitant]
     Active Substance: NOREPINEPHRINE
     Indication: MYOCARDIAL INFARCTION
  7. DEXAMETHASONE. [Suspect]
     Active Substance: DEXAMETHASONE
     Indication: PLASMA CELL MYELOMA
     Dosage: 40 MILLIGRAM
     Route: 048
     Dates: start: 20181108, end: 20181108
  8. CHOLECALCIFEROL [Concomitant]
     Active Substance: CHOLECALCIFEROL
     Indication: PROPHYLAXIS
     Route: 048
     Dates: start: 20181108
  9. CARFILZOMIB [Suspect]
     Active Substance: CARFILZOMIB
     Route: 041
     Dates: start: 20181108, end: 20181109
  10. HYDROCORTISONE. [Concomitant]
     Active Substance: HYDROCORTISONE
     Indication: SEPSIS
     Route: 041
     Dates: start: 20181112
  11. REVLIMID [Suspect]
     Active Substance: LENALIDOMIDE
     Indication: PLASMA CELL MYELOMA
     Dosage: 25 MILLIGRAM
     Route: 048
     Dates: start: 20181108, end: 20181109
  12. ACICLOVIR [Concomitant]
     Active Substance: ACYCLOVIR
     Indication: INFECTION PROPHYLAXIS
     Route: 048
     Dates: start: 20181108, end: 20181117
  13. COTRIMOXAZOLE [Concomitant]
     Active Substance: SULFAMETHOXAZOLE\TRIMETHOPRIM
     Indication: PROPHYLAXIS
     Route: 048
     Dates: start: 20181108, end: 20181117
  14. VANCOMYCIN [Concomitant]
     Active Substance: VANCOMYCIN
     Indication: ANTIBIOTIC THERAPY
     Dosage: 1 GRAM
     Route: 041
     Dates: start: 20181112
  15. VITAMINE B1 [Concomitant]
     Active Substance: THIAMINE HYDROCHLORIDE
     Indication: VITAMIN B1 DEFICIENCY
     Dosage: 100 MILLIGRAM
     Route: 048
     Dates: start: 20181112, end: 20181117
  16. PROPOFOL. [Concomitant]
     Active Substance: PROPOFOL
     Indication: SEDATION
     Route: 041
     Dates: start: 20181112
  17. NORADRENALINE [Concomitant]
     Active Substance: NOREPINEPHRINE
     Indication: RESUSCITATION
     Route: 041
     Dates: start: 20181112
  18. CARFILZOMIB [Suspect]
     Active Substance: CARFILZOMIB
     Indication: PLASMA CELL MYELOMA
     Dosage: 41 MILLIGRAM
     Route: 041
     Dates: start: 20181108, end: 20181109
  19. MEROPENEM. [Concomitant]
     Active Substance: MEROPENEM
     Indication: SEPSIS
  20. VANCOMYCIN [Concomitant]
     Active Substance: VANCOMYCIN
     Indication: SEPSIS

REACTIONS (8)
  - Liver injury [Not Recovered/Not Resolved]
  - Gastroenteritis [Unknown]
  - Pleural effusion [Not Recovered/Not Resolved]
  - Multiple organ dysfunction syndrome [Fatal]
  - Myocardial infarction [Not Recovered/Not Resolved]
  - Atrial fibrillation [Not Recovered/Not Resolved]
  - Acute kidney injury [Not Recovered/Not Resolved]
  - Pyrexia [Unknown]

NARRATIVE: CASE EVENT DATE: 20181110
